FAERS Safety Report 4525272-4 (Version None)
Quarter: 2004Q4

REPORT INFORMATION
  Report Type: 
  Country: None (occurrence: None)
  Receive Date: 20041213
  Receipt Date: 20041202
  Transmission Date: 20050328
  Serious: Yes (Other)
  Sender: FDA-Public Use
  Company Number: US-ROCHE-388271

PATIENT
  Age: 78 Year
  Sex: Male

DRUGS (5)
  1. BUMEX [Suspect]
     Indication: OEDEMA
     Route: 048
     Dates: start: 20010615
  2. BUMEX [Suspect]
     Route: 048
     Dates: start: 20040915
  3. DEMADEX [Suspect]
     Indication: OEDEMA
     Route: 048
  4. EDECRIN [Suspect]
     Indication: OEDEMA
     Route: 048
  5. ZAROXOLYN [Concomitant]
     Indication: OEDEMA
     Route: 048

REACTIONS (9)
  - ABDOMINAL DISTENSION [None]
  - BLOOD BILIRUBIN ABNORMAL [None]
  - BLOOD CREATININE ABNORMAL [None]
  - BLOOD UREA ABNORMAL [None]
  - HAEMATOCRIT ABNORMAL [None]
  - HAEMOGLOBIN ABNORMAL [None]
  - HYPOTHYROIDISM [None]
  - LYMPHOCYTE COUNT ABNORMAL [None]
  - PRURITUS [None]
